FAERS Safety Report 22344291 (Version 4)
Quarter: 2024Q1

REPORT INFORMATION
  Report Type: Spontaneous
  Country: RU (occurrence: RU)
  Receive Date: 20230519
  Receipt Date: 20240328
  Transmission Date: 20240409
  Serious: Yes (Other)
  Sender: FDA-Public Use
  Company Number: RU-PFIZER INC-PV202300085361

PATIENT
  Age: 41 Year
  Sex: Female
  Weight: 60 kg

DRUGS (6)
  1. LORLATINIB [Suspect]
     Active Substance: LORLATINIB
     Indication: Lung adenocarcinoma
     Dosage: 100 MG, DAILY
     Dates: start: 201809
  2. LORLATINIB [Suspect]
     Active Substance: LORLATINIB
     Dosage: 75 MG, DAILY
     Dates: start: 202002
  3. LORLATINIB [Suspect]
     Active Substance: LORLATINIB
     Dosage: 50 MG, DAILY
     Dates: start: 202208, end: 202306
  4. ZOLEDRONIC ACID [Concomitant]
     Active Substance: ZOLEDRONIC ACID
     Dosage: UNK, CYCLIC (ONCE EVERY 28 DAYS)
     Dates: start: 2016
  5. ZOLEDRONIC ACID [Concomitant]
     Active Substance: ZOLEDRONIC ACID
     Dosage: UNK, CYCLIC (ONCE EVERY 3 MONTHS)
     Dates: start: 2017, end: 2022
  6. DOCETAXEL [Concomitant]
     Active Substance: DOCETAXEL\DOCETAXEL ANHYDROUS
     Dosage: UNK
     Dates: end: 202309

REACTIONS (10)
  - Second primary malignancy [Unknown]
  - Breast cancer [Unknown]
  - Vascular encephalopathy [Recovered/Resolved]
  - Thrombosis [Unknown]
  - Cognitive disorder [Unknown]
  - Mental disorder [Unknown]
  - Dizziness [Recovered/Resolved]
  - Memory impairment [Recovered/Resolved]
  - Neoplasm progression [Unknown]
  - Neoplasm progression [Unknown]

NARRATIVE: CASE EVENT DATE: 20220201
